FAERS Safety Report 18338503 (Version 1)
Quarter: 2020Q4

REPORT INFORMATION
  Report Type: Spontaneous
  Country: FR (occurrence: FR)
  Receive Date: 20201002
  Receipt Date: 20201002
  Transmission Date: 20210113
  Serious: Yes (Hospitalization, Congenital Anomaly, Other)
  Sender: FDA-Public Use
  Company Number: FR-MYLANLABS-2020M1082640

PATIENT

DRUGS (7)
  1. DEPAKINE                           /00228501/ [Suspect]
     Active Substance: VALPROIC ACID
     Indication: PRODUCT USED FOR UNKNOWN INDICATION
     Dosage: 500 MG, QD
     Route: 064
     Dates: start: 20030513, end: 20030621
  2. DEPAKINE                           /00228501/ [Suspect]
     Active Substance: VALPROIC ACID
     Dosage: 1500 MG, QD
     Route: 064
     Dates: start: 20030318
  3. MIDAZOLAM. [Suspect]
     Active Substance: MIDAZOLAM
     Indication: PRODUCT USED FOR UNKNOWN INDICATION
     Dosage: UNK
     Route: 064
     Dates: start: 20030317, end: 20030317
  4. DEPAKINE                           /00228501/ [Suspect]
     Active Substance: VALPROIC ACID
     Dosage: UNK
     Route: 064
     Dates: start: 20030320
  5. CLONAZEPAM. [Suspect]
     Active Substance: CLONAZEPAM
     Indication: PRODUCT USED FOR UNKNOWN INDICATION
     Dosage: 1 VIAL EVERY 6 HOURS PROGRESSIVELY DECREASED
     Route: 064
     Dates: start: 20030317
  6. DEPAKINE                           /00228501/ [Suspect]
     Active Substance: VALPROIC ACID
     Dosage: UNK
     Route: 064
     Dates: start: 20021010, end: 20030621
  7. MAGNESIUM SULFATE. [Suspect]
     Active Substance: MAGNESIUM SULFATE
     Indication: PRODUCT USED FOR UNKNOWN INDICATION
     Dosage: UNK
     Route: 064
     Dates: start: 20030317, end: 20030317

REACTIONS (21)
  - Intellectual disability [Unknown]
  - Behaviour disorder [Unknown]
  - Ear infection [Unknown]
  - Foetal exposure during pregnancy [Recovered/Resolved]
  - Social (pragmatic) communication disorder [Unknown]
  - Gross motor delay [Unknown]
  - Hypotonia [Unknown]
  - Macrocephaly [Unknown]
  - Language disorder [Unknown]
  - Dyspraxia [Unknown]
  - Coordination abnormal [Unknown]
  - Speech disorder [Unknown]
  - Bronchiolitis [Unknown]
  - Autism spectrum disorder [Unknown]
  - Echolalia [Unknown]
  - Psychomotor hyperactivity [Unknown]
  - Learning disorder [Unknown]
  - Astigmatism [Unknown]
  - Hyperkinesia [Unknown]
  - Adenoidal hypertrophy [Unknown]
  - Anxiety disorder [Unknown]

NARRATIVE: CASE EVENT DATE: 20030621
